FAERS Safety Report 9108802 (Version 1)
Quarter: 2013Q1

REPORT INFORMATION
  Report Type: Spontaneous
  Country: BR (occurrence: BR)
  Receive Date: 20130222
  Receipt Date: 20130222
  Transmission Date: 20140127
  Serious: Yes (Other)
  Sender: FDA-Public Use
  Company Number: BR-PFIZER INC-2013064712

PATIENT
  Age: 72 Year
  Sex: Female

DRUGS (9)
  1. XALATAN [Suspect]
     Indication: OPTIC NERVE DISORDER
     Dosage: ONE DROP, 2X/DAY (EVERY 12 HOURS)
     Route: 047
     Dates: start: 20120726, end: 201301
  2. ALPHAGAN [Suspect]
     Dosage: UNK
     Dates: start: 2011, end: 201301
  3. SIMVASTATIN [Concomitant]
     Dosage: UNK
     Dates: start: 2003
  4. GABAPENTIN [Concomitant]
     Dosage: UNK
     Dates: start: 20121221
  5. LORAX [Concomitant]
     Dosage: UNK
     Dates: start: 1992
  6. THIOCTACID [Concomitant]
     Dosage: UNK
     Dates: start: 20121221
  7. TRYPTANOL [Concomitant]
     Dosage: UNK
     Dates: start: 2010
  8. VIMOVO [Concomitant]
     Dosage: UNK
     Dates: start: 201212
  9. DIOVAN AMLO [Concomitant]
     Dosage: UNK
     Dates: start: 2008

REACTIONS (4)
  - Nervous system disorder [Not Recovered/Not Resolved]
  - Overdose [Recovered/Resolved]
  - Eye irritation [Recovering/Resolving]
  - Off label use [Recovered/Resolved]
